FAERS Safety Report 20848514 (Version 2)
Quarter: 2022Q2

REPORT INFORMATION
  Report Type: Spontaneous
  Country: US (occurrence: US)
  Receive Date: 20220519
  Receipt Date: 20220526
  Transmission Date: 20220720
  Serious: No
  Sender: FDA-Public Use
  Company Number: US-GSKCCFUS-Case-01375627_AE-79505

PATIENT
  Age: 76 Year
  Sex: Male

DRUGS (1)
  1. TRELEGY ELLIPTA [Suspect]
     Active Substance: FLUTICASONE FUROATE\UMECLIDINIUM BROMIDE\VILANTEROL TRIFENATATE
     Indication: Product used for unknown indication
     Dosage: 100 ?G, QD
     Route: 055
     Dates: start: 20220301, end: 202203

REACTIONS (5)
  - Stomatitis [Recovered/Resolved]
  - Tongue ulceration [Recovered/Resolved]
  - Tongue discomfort [Not Recovered/Not Resolved]
  - Tooth injury [Unknown]
  - Dry mouth [Unknown]

NARRATIVE: CASE EVENT DATE: 20220306
